FAERS Safety Report 18841932 (Version 2)
Quarter: 2021Q1

REPORT INFORMATION
  Report Type: Report from Study
  Country: None (occurrence: US)
  Receive Date: 20210204
  Receipt Date: 20210221
  Transmission Date: 20210419
  Serious: Yes (Other)
  Sender: FDA-Public Use
  Company Number: US-ABBVIE-21K-163-3757533-00

PATIENT
  Age: 37 Year
  Sex: Female
  Weight: 97.61 kg

DRUGS (1)
  1. SKYRIZI [Suspect]
     Active Substance: RISANKIZUMAB-RZAA
     Indication: PSORIASIS
     Route: 058

REACTIONS (1)
  - Breast cancer stage III [Not Recovered/Not Resolved]

NARRATIVE: CASE EVENT DATE: 20210127
